FAERS Safety Report 14401008 (Version 1)
Quarter: 2018Q1

REPORT INFORMATION
  Report Type: Spontaneous
  Country: US (occurrence: US)
  Receive Date: 20180113
  Receipt Date: 20180113
  Transmission Date: 20180509
  Serious: Yes (Hospitalization)
  Sender: FDA-Public Use
  Company Number: None

PATIENT
  Age: 73 Year
  Sex: Female
  Weight: 63.4 kg

DRUGS (3)
  1. LENALIDOMIDE (CC-5013) [Suspect]
     Active Substance: LENALIDOMIDE
     Dates: end: 20180104
  2. VELCADE [Suspect]
     Active Substance: BORTEZOMIB
     Dates: end: 20180102
  3. DEXAMETHASONE. [Suspect]
     Active Substance: DEXAMETHASONE
     Dates: end: 20180103

REACTIONS (13)
  - Rash [None]
  - Chapped lips [None]
  - Adenovirus infection [None]
  - Toxicity to various agents [None]
  - Therapy cessation [None]
  - Asthenia [None]
  - Blood potassium decreased [None]
  - Diarrhoea [None]
  - Ocular hyperaemia [None]
  - Staphylococcus test positive [None]
  - Lip dry [None]
  - Eye discharge [None]
  - Dysphagia [None]

NARRATIVE: CASE EVENT DATE: 20180105
